FAERS Safety Report 21860165 (Version 1)
Quarter: 2023Q1

REPORT INFORMATION
  Report Type: Spontaneous
  Country: IT (occurrence: None)
  Receive Date: 20230113
  Receipt Date: 20230113
  Transmission Date: 20230417
  Serious: Yes (Other)
  Sender: FDA-Public Use
  Company Number: IT-MLMSERVICE-20221226-4005894-1

PATIENT
  Age: 75 Year
  Sex: Female

DRUGS (2)
  1. EPIRUBICIN [Suspect]
     Active Substance: EPIRUBICIN
     Indication: Breast cancer female
     Dosage: UNKNOWN
     Route: 065
  2. CYCLOPHOSPHAMIDE [Suspect]
     Active Substance: CYCLOPHOSPHAMIDE
     Indication: Breast cancer female
     Dosage: UNKNOWN
     Route: 065

REACTIONS (10)
  - Joint range of motion decreased [Unknown]
  - Infusion site hypoaesthesia [Unknown]
  - Hyperaemia [Unknown]
  - Infusion site ulcer [Recovered/Resolved with Sequelae]
  - Infusion site extravasation [Recovered/Resolved with Sequelae]
  - Infusion site joint movement impairment [Unknown]
  - Infusion site necrosis [Recovered/Resolved with Sequelae]
  - Infusion site scar [Unknown]
  - Drug monitoring procedure incorrectly performed [Unknown]
  - Infusion site pain [Unknown]
